FAERS Safety Report 13285701 (Version 1)
Quarter: 2017Q1

REPORT INFORMATION
  Report Type: Spontaneous
  Country: US (occurrence: US)
  Receive Date: 20170301
  Receipt Date: 20170301
  Transmission Date: 20170428
  Serious: No
  Sender: FDA-Public Use
  Company Number: None

PATIENT
  Age: 60 Year
  Sex: Male

DRUGS (6)
  1. ENBREL [Suspect]
     Active Substance: ETANERCEPT
     Indication: ESSENTIAL HYPERTENSION
  2. ENBREL [Suspect]
     Active Substance: ETANERCEPT
     Indication: TYPE 2 DIABETES MELLITUS
  3. ENBREL [Suspect]
     Active Substance: ETANERCEPT
     Indication: DIABETIC NEPHROPATHY
  4. ENBREL [Suspect]
     Active Substance: ETANERCEPT
     Indication: HYPERLIPIDAEMIA
  5. ENBREL [Suspect]
     Active Substance: ETANERCEPT
     Indication: MAJOR DEPRESSION
  6. ENBREL [Suspect]
     Active Substance: ETANERCEPT
     Indication: RHEUMATOID ARTHRITIS

REACTIONS (3)
  - Injection site swelling [None]
  - Injection site pain [None]
  - Injection site erythema [None]

NARRATIVE: CASE EVENT DATE: 20170301
